FAERS Safety Report 5337085-4 (Version None)
Quarter: 2007Q2

REPORT INFORMATION
  Report Type: 
  Country: None (occurrence: None)
  Receive Date: 20070529
  Receipt Date: 20070516
  Transmission Date: 20071010
  Serious: Yes (Other)
  Sender: FDA-Public Use
  Company Number: US-ELI_LILLY_AND_COMPANY-US200705004598

PATIENT
  Age: 14 Year
  Sex: Male

DRUGS (2)
  1. STRATTERA [Suspect]
     Dosage: 60 MG, UNK
     Route: 048
  2. STRATTERA [Suspect]
     Dosage: 80 MG, UNK
     Route: 048
     Dates: start: 20070425

REACTIONS (1)
  - SLEEP PARALYSIS [None]
